FAERS Safety Report 7564820-7 (Version None)
Quarter: 2011Q2

REPORT INFORMATION
  Report Type: 
  Country: None (occurrence: None)
  Receive Date: 20110622
  Receipt Date: 20101220
  Transmission Date: 20111010
  Serious: Yes (Death)
  Sender: FDA-Public Use
  Company Number: US-MYLANLABS-2010S1023041

PATIENT
  Age: 75 Year
  Sex: Female

DRUGS (6)
  1. SENOKOT [Concomitant]
     Dates: end: 20101210
  2. ATROPINE [Concomitant]
     Dates: end: 20101210
  3. LORAZEPAM [Concomitant]
     Dates: end: 20101210
  4. CLOZAPINE [Suspect]
     Indication: PARKINSON'S DISEASE
  5. CEPHALEXIN [Concomitant]
     Dates: end: 20101210
  6. ACETAMINOPHEN [Concomitant]
     Dates: end: 20101210

REACTIONS (1)
  - PARKINSON'S DISEASE [None]
